FAERS Safety Report 26061683 (Version 3)
Quarter: 2025Q4

REPORT INFORMATION
  Report Type: Spontaneous
  Country: US (occurrence: US)
  Receive Date: 20251118
  Receipt Date: 20251209
  Transmission Date: 20260118
  Serious: Yes (Other)
  Sender: JOHNSON AND JOHNSON
  Company Number: US-JNJFOC-20251158475

PATIENT
  Age: 45 Year
  Sex: Female

DRUGS (5)
  1. UPTRAVI [Suspect]
     Active Substance: SELEXIPAG
     Indication: Pulmonary arterial hypertension
     Route: 048
     Dates: start: 20221116
  2. UPTRAVI [Suspect]
     Active Substance: SELEXIPAG
     Route: 048
     Dates: start: 202211
  3. AMBRISENTAN [Suspect]
     Active Substance: AMBRISENTAN
     Indication: Pulmonary arterial hypertension
     Route: 048
     Dates: start: 20250514
  4. WINREVAIR [Suspect]
     Active Substance: SOTATERCEPT-CSRK
     Indication: Pulmonary arterial hypertension
     Route: 058
     Dates: start: 20250908
  5. WINREVAIR [Suspect]
     Active Substance: SOTATERCEPT-CSRK
     Route: 058
     Dates: start: 202509

REACTIONS (10)
  - Haematochezia [Recovered/Resolved]
  - Dyspnoea exertional [Not Recovered/Not Resolved]
  - Paraesthesia [Unknown]
  - Tachycardia [Not Recovered/Not Resolved]
  - Joint instability [Unknown]
  - Dizziness [Unknown]
  - Nausea [Unknown]
  - Epistaxis [Unknown]
  - Haemoglobin increased [Unknown]
  - Laboratory test abnormal [Not Recovered/Not Resolved]

NARRATIVE: CASE EVENT DATE: 20251105
